FAERS Safety Report 8094010-3 (Version None)
Quarter: 2012Q1

REPORT INFORMATION
  Report Type: 
  Country: None (occurrence: None)
  Receive Date: 20120131
  Receipt Date: 20120125
  Transmission Date: 20120608
  Serious: Yes (Other)
  Sender: FDA-Public Use
  Company Number: PHFR2012GB000848

PATIENT
  Age: 26 Year
  Sex: Male

DRUGS (3)
  1. ANTIBIOTICS [Concomitant]
     Dosage: UNK
  2. EXJADE [Suspect]
     Indication: IRON OVERLOAD
     Dosage: 20 MG X KG X DAY
     Dates: start: 20110201
  3. ANTIVIRALS [Concomitant]
     Dosage: UNK

REACTIONS (2)
  - RASH [None]
  - QUALITY OF LIFE DECREASED [None]
